FAERS Safety Report 16816048 (Version 1)
Quarter: 2019Q3

REPORT INFORMATION
  Report Type: Spontaneous
  Country: US (occurrence: US)
  Receive Date: 20190917
  Receipt Date: 20190917
  Transmission Date: 20191005
  Serious: No
  Sender: FDA-Public Use
  Company Number: US-KYOWAKIRIN-2019BKK014431

PATIENT

DRUGS (1)
  1. SANCUSO [Suspect]
     Active Substance: GRANISETRON
     Indication: COLON CANCER
     Dosage: ONE PATCH EVERY 2 WEEKS
     Route: 062
     Dates: start: 20190412, end: 2019

REACTIONS (3)
  - Product use in unapproved indication [Recovered/Resolved]
  - Application site rash [Unknown]
  - Hypersensitivity [Unknown]

NARRATIVE: CASE EVENT DATE: 2019
